FAERS Safety Report 5895634-1 (Version None)
Quarter: 2008Q3

REPORT INFORMATION
  Report Type: 
  Country: None (occurrence: None)
  Receive Date: 20080922
  Receipt Date: 20080909
  Transmission Date: 20090109
  Serious: Yes (Hospitalization)
  Sender: FDA-Public Use
  Company Number: 2008AP002203

PATIENT
  Age: 10 Year
  Sex: Female

DRUGS (3)
  1. CARBAMAZEPINE [Suspect]
     Indication: EPILEPSY
  2. PREDNISONE [Suspect]
     Indication: HYPERSENSITIVITY
     Dosage: 2 MG/KG; QD
  3. IMMUNE GLOBULIN INTRAVENOUS (HUMAN) [Suspect]
     Indication: HYPERSENSITIVITY
     Dosage: 2000 GM/KG, IV
     Route: 042

REACTIONS (22)
  - ANTICONVULSANT DRUG LEVEL INCREASED [None]
  - BETA HAEMOLYTIC STREPTOCOCCAL INFECTION [None]
  - BLOOD ALKALINE PHOSPHATASE INCREASED [None]
  - CONJUNCTIVITIS [None]
  - CYTOMEGALOVIRUS TEST POSITIVE [None]
  - DRUG RASH WITH EOSINOPHILIA AND SYSTEMIC SYMPTOMS [None]
  - DYSPNOEA [None]
  - FACE OEDEMA [None]
  - LIP SWELLING [None]
  - LIVER TENDERNESS [None]
  - LYMPHADENITIS [None]
  - OEDEMA PERIPHERAL [None]
  - PAIN IN EXTREMITY [None]
  - PULSE PRESSURE INCREASED [None]
  - SKIN FISSURES [None]
  - STAPHYLOCOCCAL ABSCESS [None]
  - STOMATITIS [None]
  - TACHYCARDIA [None]
  - TENDONITIS [None]
  - TRANSAMINASES INCREASED [None]
  - URINARY TRACT INFECTION [None]
  - VIRAL INFECTION [None]
